FAERS Safety Report 7443763-3 (Version None)
Quarter: 2011Q2

REPORT INFORMATION
  Report Type: 
  Country: None (occurrence: None)
  Receive Date: 20110428
  Receipt Date: 20110422
  Transmission Date: 20111010
  Serious: Yes (Life-Threatening, Hospitalization, Other)
  Sender: FDA-Public Use
  Company Number: US-CELGENEUS-ABCAD-11-0215

PATIENT
  Sex: Female

DRUGS (2)
  1. ABRAXANE [Suspect]
     Dosage: 70 MILLIGRAM/SQ. METER
     Route: 065
     Dates: start: 20110406
  2. ABRAXANE [Suspect]
     Dosage: 80 MILLIGRAM/SQ. METER
     Route: 065
     Dates: start: 20110301

REACTIONS (4)
  - FEBRILE NEUTROPENIA [None]
  - MUCOSAL INFLAMMATION [None]
  - AGRANULOCYTOSIS [None]
  - HYPONATRAEMIA [None]
